FAERS Safety Report 4919323-2 (Version None)
Quarter: 2006Q1

REPORT INFORMATION
  Report Type: 
  Country: None (occurrence: None)
  Receive Date: 20060216
  Receipt Date: 20060203
  Transmission Date: 20060701
  Serious: Yes (Hospitalization, Other)
  Sender: FDA-Public Use
  Company Number: 2006017995

PATIENT
  Sex: Male
  Weight: 89.8122 kg

DRUGS (4)
  1. VIAGRA [Suspect]
     Indication: ERECTILE DYSFUNCTION
     Dosage: 50 MG (50 MG, AS NECESSARY),
  2. SYNTHROID [Concomitant]
  3. ZOCOR [Concomitant]
  4. FLOMAX [Concomitant]

REACTIONS (6)
  - DRUG EFFECT DECREASED [None]
  - DYSURIA [None]
  - ERECTILE DYSFUNCTION [None]
  - FLUSHING [None]
  - HEADACHE [None]
  - PROSTATIC OPERATION [None]
